FAERS Safety Report 18484151 (Version 1)
Quarter: 2020Q4

REPORT INFORMATION
  Report Type: Spontaneous
  Country: CZ (occurrence: CZ)
  Receive Date: 20201110
  Receipt Date: 20201110
  Transmission Date: 20210114
  Serious: Yes (Other)
  Sender: FDA-Public Use
  Company Number: CZ-ACCORD-207776

PATIENT
  Age: 42 Year
  Sex: Male

DRUGS (3)
  1. ETOPOSIDE. [Suspect]
     Active Substance: ETOPOSIDE
     Indication: EXTRAGONADAL PRIMARY EMBRYONAL CARCINOMA
     Dosage: DAY 1-5, THERAPY END DATE: FEB-2008
     Dates: start: 200711
  2. CISPLATIN. [Suspect]
     Active Substance: CISPLATIN
     Indication: EXTRAGONADAL PRIMARY EMBRYONAL CARCINOMA
     Dosage: DAY 1-5, THERAPY END DATE: FEB-2008
     Dates: start: 200711
  3. BLEOMYCIN [Suspect]
     Active Substance: BLEOMYCIN SULFATE
     Indication: EXTRAGONADAL PRIMARY EMBRYONAL CARCINOMA
     Dosage: DAY 1, 8, AND 15, THERAPY END DATE: FEB-2008
     Dates: start: 200711

REACTIONS (2)
  - Febrile neutropenia [Recovered/Resolved]
  - Septic shock [Recovered/Resolved]
